FAERS Safety Report 7973228-1 (Version None)
Quarter: 2011Q4

REPORT INFORMATION
  Report Type: 
  Country: None (occurrence: None)
  Receive Date: 20111213
  Receipt Date: 20111206
  Transmission Date: 20120403
  Serious: Yes (Hospitalization)
  Sender: FDA-Public Use
  Company Number: US-UCBSA-018637

PATIENT
  Age: 49 Year
  Sex: Female
  Weight: 73 kg

DRUGS (13)
  1. LEVOFLOXACIN [Concomitant]
     Indication: ADRENAL SUPPRESSION
     Route: 048
     Dates: start: 20090425
  2. FOLIC ACID [Concomitant]
     Indication: VITAMIN SUPPLEMENTATION
     Route: 048
     Dates: start: 20090501
  3. BENADRYL [Concomitant]
     Indication: MOTION SICKNESS
     Dosage: 1-2 PO Q4H
     Route: 048
     Dates: start: 20100101
  4. CITALOPRAM [Concomitant]
     Indication: DEPRESSION
     Route: 048
     Dates: start: 20100426
  5. CYANOCOBALAMIN [Concomitant]
     Indication: SUPPLEMENTATION THERAPY
     Route: 030
     Dates: start: 20070101
  6. AMITRIPTYLINE HCL [Concomitant]
     Indication: DEPRESSION
     Route: 048
     Dates: start: 20090101
  7. LOPERAMIDE HCL [Concomitant]
     Indication: DIARRHOEA
     Dosage: 8 MG QID AS REQUIRED
     Dates: start: 20090101
  8. FENTANYL [Concomitant]
     Indication: PAIN
     Dates: start: 20100527
  9. CIMZIA [Suspect]
     Indication: CROHN'S DISEASE
     Route: 058
     Dates: start: 20091109
  10. METHOTREXATE [Suspect]
  11. BENADRYL [Concomitant]
     Indication: RASH
     Dosage: 1-2 PO Q4H
     Route: 048
     Dates: start: 20100101
  12. ALLEGRA [Concomitant]
     Indication: SEASONAL ALLERGY
     Dosage: 2 SL BID
     Route: 048
     Dates: start: 20100201
  13. CLONAZEPAM [Concomitant]
     Indication: ANXIETY
     Route: 048
     Dates: start: 20100425

REACTIONS (1)
  - CATHETER SITE INFECTION [None]
